FAERS Safety Report 4413918-0 (Version None)
Quarter: 2004Q3

REPORT INFORMATION
  Report Type: 
  Country: None (occurrence: None)
  Receive Date: 20040802
  Receipt Date: 20040719
  Transmission Date: 20050211
  Serious: Yes (Disabling)
  Sender: FDA-Public Use
  Company Number: 2004UW06341

PATIENT
  Age: 40 Year
  Sex: Male
  Weight: 78.4723 kg

DRUGS (6)
  1. CRESTOR [Suspect]
     Indication: HYPERCHOLESTEROLAEMIA
     Dosage: 10 MG QD PO
     Route: 048
     Dates: start: 20040304, end: 20040323
  2. MONOPRIL [Concomitant]
  3. GLUCOVANCE [Concomitant]
  4. ASPIRIN [Concomitant]
  5. INSULIN [Concomitant]
  6. LIPITOR [Concomitant]

REACTIONS (5)
  - ARTHRALGIA [None]
  - CHROMATURIA [None]
  - GALLBLADDER DISORDER [None]
  - HEPATIC CIRRHOSIS [None]
  - HEPATITIS ACUTE [None]
